FAERS Safety Report 15150396 (Version 2)
Quarter: 2018Q3

REPORT INFORMATION
  Report Type: Report from Study
  Country: HU (occurrence: HU)
  Receive Date: 20180716
  Receipt Date: 20180809
  Transmission Date: 20181010
  Serious: Yes (Death, Hospitalization, Other)
  Sender: FDA-Public Use
  Company Number: HU-PFIZER INC-2018279133

PATIENT
  Age: 77 Year
  Sex: Male
  Weight: 83 kg

DRUGS (21)
  1. AMLODIPINE BESILATE [Suspect]
     Active Substance: AMLODIPINE BESYLATE
     Route: 065
  2. FOTEMUSTINE [Concomitant]
     Active Substance: FOTEMUSTINE
     Route: 065
  3. CLEXANE [Concomitant]
     Active Substance: ENOXAPARIN SODIUM
     Dosage: 0.4 ML, QD IN THE EVENING
     Route: 058
  4. NEUROMULTIVIT [Concomitant]
     Active Substance: CYANOCOBALAMIN\PYRIDOXINE\THIAMINE
     Dosage: 1 DF, QD IN THE MORNING
     Route: 065
  5. CONTROLOC [Concomitant]
     Active Substance: PANTOPRAZOLE SODIUM
     Dosage: 40 MG, QD IN THE EVENING
     Route: 065
  6. LEVETIRACETAM. [Suspect]
     Active Substance: LEVETIRACETAM
     Dosage: UNK
     Route: 065
  7. DEXAMETHASONE. [Suspect]
     Active Substance: DEXAMETHASONE
     Dosage: UNK
     Route: 065
     Dates: start: 20180430
  8. MEKINIST [Suspect]
     Active Substance: TRAMETINIB DIMETHYL SULFOXIDE
     Indication: METASTATIC MALIGNANT MELANOMA
     Dosage: 1 DF, QD AT NOON
     Route: 048
  9. FRESUBIN /08301801/ [Concomitant]
     Dosage: 100 ML, 10X/DAY
     Route: 065
  10. CO RENITEC [Concomitant]
     Active Substance: ENALAPRIL MALEATE\HYDROCHLOROTHIAZIDE
     Route: 065
  11. ASCORBIC [Concomitant]
     Route: 065
  12. KCL [Concomitant]
     Active Substance: POTASSIUM CHLORIDE
     Dosage: 2 G, UNK
     Route: 065
  13. DIAPREL [Concomitant]
     Active Substance: GLICLAZIDE
     Dosage: 2 DF, QD
     Route: 065
  14. CONCOR COR [Concomitant]
     Active Substance: BISOPROLOL FUMARATE
     Dosage: 2.5 MG, QD IN THE MORNING
     Route: 065
  15. MAGNE B6 [Concomitant]
     Active Substance: MAGNESIUM\PYRIDOXINE
     Dosage: 2 DF, QD IN THE MORNING
     Route: 065
  16. TAFINLAR [Suspect]
     Active Substance: DABRAFENIB MESYLATE
     Indication: METASTATIC MALIGNANT MELANOMA
     Dosage: 2 DF, BID
     Route: 048
  17. XANAX [Concomitant]
     Active Substance: ALPRAZOLAM
     Route: 065
  18. CLONAZEPAM. [Concomitant]
     Active Substance: CLONAZEPAM
     Route: 065
  19. CAPECITABINE. [Suspect]
     Active Substance: CAPECITABINE
     Indication: COLON CANCER
     Dosage: 2 DF, QID
     Route: 065
  20. VELMETIA [Suspect]
     Active Substance: METFORMIN\SITAGLIPTIN
     Route: 065
  21. REFLUXON [Concomitant]
     Route: 065

REACTIONS (36)
  - Fatigue [Fatal]
  - Brain oedema [Fatal]
  - Supraventricular extrasystoles [Fatal]
  - Tachycardia [Fatal]
  - Agitation [Fatal]
  - Bundle branch block right [Fatal]
  - Metastases to central nervous system [Fatal]
  - Neoplasm progression [Fatal]
  - Muscle twitching [Fatal]
  - Speech disorder [Fatal]
  - Diarrhoea [Fatal]
  - Chills [Fatal]
  - Decreased appetite [Fatal]
  - Hyperkeratosis [Fatal]
  - Atrioventricular block first degree [Fatal]
  - Cough [Fatal]
  - Hypovolaemia [Fatal]
  - Pyrexia [Fatal]
  - Dehydration [Fatal]
  - Somnolence [Fatal]
  - White blood cell count increased [Fatal]
  - Clonus [Fatal]
  - Iron deficiency [Fatal]
  - Constipation [Fatal]
  - Status epilepticus [Fatal]
  - Thrombocytosis [Fatal]
  - Abdominal pain [Fatal]
  - Atrial fibrillation [Fatal]
  - Anaemia [Fatal]
  - Weight decreased [Fatal]
  - Hypokalaemia [Fatal]
  - Acidosis [Fatal]
  - Neutropenia [Fatal]
  - Vomiting [Fatal]
  - Altered state of consciousness [Fatal]
  - C-reactive protein increased [Fatal]

NARRATIVE: CASE EVENT DATE: 20180109
